FAERS Safety Report 4716326-8 (Version None)
Quarter: 2005Q3

REPORT INFORMATION
  Report Type: 
  Country: None (occurrence: None)
  Receive Date: 20050711
  Receipt Date: 20040524
  Transmission Date: 20060218
  Serious: Yes (Hospitalization)
  Sender: FDA-Public Use
  Company Number: 369115

PATIENT
  Age: 61 Year
  Sex: Male
  Weight: 81.7 kg

DRUGS (9)
  1. CELLCEPT [Suspect]
     Indication: PROPHYLAXIS AGAINST TRANSPLANT REJECTION
     Dates: start: 20020401, end: 20020510
  2. ARANESP [Suspect]
     Indication: RENAL FAILURE CHRONIC
     Dosage: 100 MCG 1 PER WEEK SUBCUTANEOUS
     Route: 058
     Dates: start: 20020510
  3. SIROLIMUS (SIROLIMUS) [Suspect]
  4. PROCRIT [Concomitant]
  5. CYCLOSPORINE [Concomitant]
  6. PREDNISONE [Concomitant]
  7. AMLODIPINE BESYLATE [Concomitant]
  8. GANCICLOVIR SODIUM [Concomitant]
  9. TRIMETHOPRIM-SULFAMETHOXAZOLE [Concomitant]

REACTIONS (1)
  - ANAEMIA [None]
